FAERS Safety Report 25286984 (Version 1)
Quarter: 2025Q2

REPORT INFORMATION
  Report Type: Spontaneous
  Country: US (occurrence: None)
  Receive Date: 20250508
  Receipt Date: 20250508
  Transmission Date: 20250716
  Serious: No
  Sender: FDA-CTU
  Company Number: None

PATIENT
  Age: 82 Year
  Sex: Female

DRUGS (4)
  1. AMBRISENTAN [Suspect]
     Active Substance: AMBRISENTAN
     Indication: Pulmonary hypertension
     Dosage: FREQUENCY : DAILY;?
     Route: 048
  2. TADALAFIL [Suspect]
     Active Substance: TADALAFIL
  3. CRESTOR [Suspect]
     Active Substance: ROSUVASTATIN CALCIUM
  4. TYVASO [Suspect]
     Active Substance: TREPROSTINIL

REACTIONS (7)
  - Pain in extremity [None]
  - Pruritus [None]
  - Pruritus [None]
  - Skin disorder [None]
  - Headache [None]
  - Infection [None]
  - Adverse drug reaction [None]
